FAERS Safety Report 25522093 (Version 1)
Quarter: 2025Q3

REPORT INFORMATION
  Report Type: Spontaneous
  Country: EU (occurrence: EU)
  Receive Date: 20250707
  Receipt Date: 20250707
  Transmission Date: 20251020
  Serious: Yes (Hospitalization, Other)
  Sender: ABBVIE
  Company Number: EU-ABBVIE-6357368

PATIENT
  Age: 34 Year
  Sex: Male

DRUGS (2)
  1. RINVOQ [Suspect]
     Active Substance: UPADACITINIB
     Indication: Colitis
     Dosage: LAST ADMIN DATE: 2024
     Route: 048
     Dates: start: 202404
  2. RINVOQ [Suspect]
     Active Substance: UPADACITINIB
     Indication: Colitis
     Route: 048
     Dates: start: 2024, end: 202505

REACTIONS (4)
  - Cerebral infarction [Unknown]
  - Dysarthria [Unknown]
  - Facial paresis [Unknown]
  - Colitis [Unknown]

NARRATIVE: CASE EVENT DATE: 20250101
